FAERS Safety Report 15940538 (Version 2)
Quarter: 2019Q2

REPORT INFORMATION
  Report Type: Spontaneous
  Country: JP (occurrence: JP)
  Receive Date: 20190208
  Receipt Date: 20190426
  Transmission Date: 20190711
  Serious: Yes (Other)
  Sender: FDA-Public Use
  Company Number: JP-ELI_LILLY_AND_COMPANY-JP201902000118

PATIENT
  Age: 49 Year
  Sex: Female
  Weight: 52 kg

DRUGS (7)
  1. LEUPLIN [Concomitant]
     Active Substance: LEUPROLIDE ACETATE
     Dosage: UNK, CYCLICAL
     Dates: start: 20181205, end: 20190108
  2. ZOLPIDEM TARTRATE. [Concomitant]
     Active Substance: ZOLPIDEM TARTRATE
     Dosage: UNK
     Dates: start: 20190108
  3. LOXOPROFEN [Concomitant]
     Active Substance: LOXOPROFEN
     Dosage: UNK
     Dates: start: 20190105, end: 20190110
  4. VERZENIO [Suspect]
     Active Substance: ABEMACICLIB
     Indication: BREAST CANCER
     Dosage: 150 MG, BID
     Route: 048
     Dates: start: 20181217, end: 20190122
  5. FASLODEX [Concomitant]
     Active Substance: FULVESTRANT
     Indication: BREAST CANCER
     Dosage: UNK, CYCLICAL
     Dates: start: 20181214, end: 20190111
  6. CEFCAPENE [Concomitant]
     Active Substance: CEFCAPENE
     Dosage: UNK
     Dates: start: 20190105, end: 20190110
  7. DENOTAS [Concomitant]
     Active Substance: CALCIUM CARBONATE\CHOLECALCIFEROL\MAGNESIUM CARBONATE
     Dosage: UNK
     Dates: start: 20181205

REACTIONS (3)
  - Neutrophil count decreased [Unknown]
  - Liver disorder [Not Recovered/Not Resolved]
  - Beta haemolytic streptococcal infection [Unknown]

NARRATIVE: CASE EVENT DATE: 201901
